FAERS Safety Report 5770132-4 (Version None)
Quarter: 2008Q2

REPORT INFORMATION
  Report Type: 
  Country: None (occurrence: None)
  Receive Date: 20080613
  Receipt Date: 20080421
  Transmission Date: 20081010
  Serious: No
  Sender: FDA-Public Use
  Company Number: US-ABBOTT-08P-163-0448362-00

PATIENT
  Sex: Female
  Weight: 59.02 kg

DRUGS (9)
  1. HUMIRA [Suspect]
     Indication: CROHN'S DISEASE
     Route: 058
     Dates: start: 20080407, end: 20080407
  2. HUMIRA [Suspect]
     Route: 058
     Dates: start: 20080408, end: 20080408
  3. HUMIRA [Suspect]
     Route: 058
     Dates: start: 20080421, end: 20080421
  4. HUMIRA [Suspect]
     Route: 058
  5. METRONIDAZOLE HCL [Concomitant]
     Indication: FISTULA
     Route: 048
  6. COLESEVELAM HYDROCHLORIDE [Concomitant]
     Indication: CROHN'S DISEASE
     Route: 048
  7. VITAMINS [Concomitant]
     Indication: VITAMIN SUPPLEMENTATION
     Route: 048
  8. ESOMEPRAZOLE MAGNESIUM [Concomitant]
     Indication: GASTROOESOPHAGEAL REFLUX DISEASE
     Route: 048
  9. IRON [Concomitant]
     Indication: ANAEMIA
     Route: 048

REACTIONS (2)
  - ACCIDENTAL EXPOSURE [None]
  - INJECTION SITE HAEMORRHAGE [None]
